FAERS Safety Report 8154766-8 (Version None)
Quarter: 2012Q1

REPORT INFORMATION
  Report Type: 
  Country: None (occurrence: None)
  Receive Date: 20120221
  Receipt Date: 20120210
  Transmission Date: 20120608
  Serious: Yes (Hospitalization)
  Sender: FDA-Public Use
  Company Number: PHHY2012AU006532

PATIENT
  Sex: Female

DRUGS (2)
  1. ACYCLOVIR [Concomitant]
     Indication: PROPHYLAXIS
     Dosage: 300 MG, TID
  2. TASIGNA [Suspect]
     Indication: CHRONIC MYELOID LEUKAEMIA
     Dosage: 800 MG, BID
     Route: 048

REACTIONS (6)
  - PALLOR [None]
  - COLD SWEAT [None]
  - DYSPNOEA [None]
  - MYOCARDIAL INFARCTION [None]
  - FEELING COLD [None]
  - CHEST DISCOMFORT [None]
